FAERS Safety Report 4321118-8 (Version None)
Quarter: 2004Q1

REPORT INFORMATION
  Report Type: 
  Country: None (occurrence: None)
  Receive Date: 20040322
  Receipt Date: 20040303
  Transmission Date: 20041129
  Serious: Yes (Other)
  Sender: FDA-Public Use
  Company Number: GB-GLAXOSMITHKLINE-B0325622A

PATIENT
  Age: 3 Year
  Sex: Male

DRUGS (2)
  1. FLIXOTIDE [Suspect]
     Route: 055
  2. VENTOLIN [Concomitant]

REACTIONS (2)
  - AGGRESSION [None]
  - PSYCHOMOTOR HYPERACTIVITY [None]
